FAERS Safety Report 16158897 (Version 1)
Quarter: 2019Q2

REPORT INFORMATION
  Report Type: Spontaneous
  Country: US (occurrence: US)
  Receive Date: 20190403
  Receipt Date: 20190403
  Transmission Date: 20190711
  Serious: Yes (Other)
  Sender: FDA-Public Use
  Company Number: None

PATIENT
  Age: 59 Year
  Sex: Female
  Weight: 96.3 kg

DRUGS (2)
  1. ROBAFEN AC [Suspect]
     Active Substance: CODEINE PHOSPHATE\GUAIFENESIN
     Indication: COUGH
     Dosage: 2 TEASPOONS 3 TIMES A DAY; ORAL
     Route: 048
     Dates: start: 20190401, end: 20190403
  2. ROBAFEN AC [Suspect]
     Active Substance: CODEINE PHOSPHATE\GUAIFENESIN
     Indication: NASOPHARYNGITIS
     Dosage: 2 TEASPOONS 3 TIMES A DAY; ORAL
     Route: 048
     Dates: start: 20190401, end: 20190403

REACTIONS (1)
  - Headache [None]

NARRATIVE: CASE EVENT DATE: 20190402
